FAERS Safety Report 18363857 (Version 1)
Quarter: 2020Q4

REPORT INFORMATION
  Report Type: Spontaneous
  Country: CA (occurrence: CA)
  Receive Date: 20201009
  Receipt Date: 20201009
  Transmission Date: 20210114
  Serious: Yes (Other)
  Sender: FDA-Public Use
  Company Number: CA-JNJFOC-20201001893

PATIENT
  Age: 53 Year
  Sex: Female

DRUGS (5)
  1. VITAMIN D                          /00318501/ [Concomitant]
     Active Substance: CHOLECALCIFEROL
     Indication: OSTEOPOROSIS PROPHYLAXIS
  2. INFLIXIMAB, RECOMBINANT [Suspect]
     Active Substance: INFLIXIMAB
     Indication: COLITIS ULCERATIVE
     Route: 042
  3. FOLATE [Concomitant]
     Active Substance: FOLATE SODIUM
     Route: 048
  4. CALCIUM CARBONATE. [Concomitant]
     Active Substance: CALCIUM CARBONATE
     Indication: OSTEOPOROSIS PROPHYLAXIS
     Dosage: EVERY DAY
     Route: 065
  5. METHOTREXATE. [Concomitant]
     Active Substance: METHOTREXATE
     Route: 048

REACTIONS (4)
  - Hypotension [Unknown]
  - Condition aggravated [Unknown]
  - Off label use [Unknown]
  - Blood pressure fluctuation [Unknown]
